FAERS Safety Report 6185284-4 (Version None)
Quarter: 2009Q2

REPORT INFORMATION
  Report Type: 
  Country: None (occurrence: None)
  Receive Date: 20090511
  Receipt Date: 20090429
  Transmission Date: 20091009
  Serious: Yes (Hospitalization)
  Sender: FDA-Public Use
  Company Number: PL-ROCHE-624327

PATIENT
  Sex: Female
  Weight: 54 kg

DRUGS (17)
  1. MYCOPHENOLATE MOFETIL [Suspect]
     Indication: DRUG USE FOR UNKNOWN INDICATION
     Dosage: DOSING FREQ: 2X1 DAILY
     Route: 048
     Dates: start: 20080822, end: 20090303
  2. NEORECORMON [Suspect]
     Dosage: DOSING AMT: 2000 U; DOSING FREQ: 1 PER WEEK
     Route: 058
     Dates: start: 20071207, end: 20071224
  3. NEORECORMON [Suspect]
     Dosage: DOSE: 1000 U
     Route: 058
     Dates: start: 20071228, end: 20071228
  4. NEORECORMON [Suspect]
     Dosage: DOSE: 2000 U
     Route: 058
     Dates: start: 20071231, end: 20071231
  5. NEORECORMON [Suspect]
     Dosage: DOSE: 1000U
     Route: 058
     Dates: start: 20080104, end: 20080104
  6. NEORECORMON [Suspect]
     Dosage: DOSE: 2000U
     Route: 058
     Dates: start: 20080107, end: 20080107
  7. NEORECORMON [Suspect]
     Dosage: DOSE:1000U
     Route: 058
     Dates: start: 20080111, end: 20080118
  8. NEORECORMON [Suspect]
     Dosage: DOSE:2000U
     Route: 058
     Dates: start: 20080121, end: 20080204
  9. NEORECORMON [Suspect]
     Dosage: DOSE:1000U
     Route: 058
     Dates: start: 20080211, end: 20080211
  10. NEORECORMON [Suspect]
     Dosage: DOSE:2000U
     Route: 058
     Dates: start: 20080218, end: 20080310
  11. NEORECORMON [Suspect]
     Dosage: DOSE:4000U
     Route: 058
     Dates: start: 20080317, end: 20080317
  12. NEORECORMON [Suspect]
     Dosage: DOSE:2000U
     Route: 058
     Dates: start: 20080324, end: 20080421
  13. NEORECORMON [Suspect]
     Dosage: DOSE:1000U
     Route: 058
     Dates: start: 20080428, end: 20080808
  14. NEORECORMON [Suspect]
     Dosage: DOSE:1000U
     Route: 058
     Dates: start: 20080811, end: 20080818
  15. ARANESP [Suspect]
     Dosage: DOSING FREQ: 1 PER 2 WEEK
     Route: 058
     Dates: start: 20060505, end: 20070929
  16. ARANESP [Suspect]
     Dosage: DOSING AMT: 40; DOSING FREQ: 1 PER 2 WEEK
     Route: 058
     Dates: start: 20081201
  17. TACROLIMUS [Concomitant]
     Route: 048
     Dates: start: 20080822

REACTIONS (1)
  - APLASIA PURE RED CELL [None]
